FAERS Safety Report 8956678 (Version 1)
Quarter: 2012Q4

REPORT INFORMATION
  Report Type: 
  Country: US (occurrence: US)
  Receive Date: 20121210
  Receipt Date: 20121210
  Transmission Date: 20130627
  Serious: Yes (Death, Hospitalization, Other)
  Sender: FDA-Public Use
  Company Number: US-TEVA-374112USA

PATIENT
  Age: 1 None
  Sex: Female

DRUGS (5)
  1. MYCOPHENOLIC ACID [Suspect]
  2. METHYLPREDNISOLONE [Suspect]
     Indication: IMMUNOSUPPRESSANT DRUG THERAPY
  3. TACROLIMUS [Suspect]
     Indication: IMMUNOSUPPRESSANT DRUG THERAPY
     Dosage: target level of 15 ng/mL for the first month
     Route: 065
  4. TACROLIMUS [Suspect]
     Indication: IMMUNOSUPPRESSANT DRUG THERAPY
     Dosage: target level of 8-10 ng/mL after the first month post-transplantation
     Route: 065
  5. SIROLIMUS [Suspect]
     Dosage: target level of 10 ng/mL
     Route: 065

REACTIONS (11)
  - Polyomavirus-associated nephropathy [Not Recovered/Not Resolved]
  - Encephalitis brain stem [Not Recovered/Not Resolved]
  - Central nervous system necrosis [Fatal]
  - Glomerulosclerosis [Fatal]
  - Kidney fibrosis [Fatal]
  - Autonomic nervous system imbalance [Unknown]
  - Neurological symptom [Unknown]
  - Lymphocytic infiltration [Unknown]
  - Cardiomegaly [Unknown]
  - Respiratory failure [Unknown]
  - Transplant rejection [Unknown]
